FAERS Safety Report 13296130 (Version 1)
Quarter: 2017Q1

REPORT INFORMATION
  Report Type: Spontaneous
  Country: DE (occurrence: DE)
  Receive Date: 20170304
  Receipt Date: 20170304
  Transmission Date: 20170428
  Serious: Yes (Other)
  Sender: FDA-Public Use
  Company Number: DE-ACCORD-048748

PATIENT
  Age: 9 Year
  Sex: Male
  Weight: 32 kg

DRUGS (7)
  1. IFOSFAMIDE. [Suspect]
     Active Substance: IFOSFAMIDE
     Indication: NEUROBLASTOMA
     Dosage: 1500 MG/M^2/D (DAYS 1 TO 5) AT INTERVALS OF 3 WEEKS
  2. CISPLATIN. [Suspect]
     Active Substance: CISPLATIN
     Indication: NEUROBLASTOMA
     Dosage: 40 MG/M^2/D (DAYS 1 TO 4) AT INTERVALS OF 3 WEEKS
  3. ETOPOSIDE. [Suspect]
     Active Substance: ETOPOSIDE
     Indication: NEUROBLASTOMA
     Dosage: 100 MG/M^2/D (DAYS 1 TO 4) AT INTERVALS OF 3 WEEKS
  4. DOXORUBICIN [Concomitant]
     Active Substance: DOXORUBICIN
     Indication: NEUROBLASTOMA
     Dosage: 30 MG/M^2/D (DAYS 6 TO 7) AT INTERVALS OF 3 WEEKS
  5. VINCRISTINE [Concomitant]
     Active Substance: VINCRISTINE
     Indication: NEUROBLASTOMA
     Dosage: 1.5 MG/M^2 (DAYS 1 AND 8) AT INTERVALS OF 3 WEEKS
  6. VINDESINE/VINDESINE SULFATE [Concomitant]
     Indication: NEUROBLASTOMA
     Dosage: 3MG/M^2 (DAY 1) AT INTERVALS OF 3 WEEKS
  7. DACARBAZINE. [Concomitant]
     Active Substance: DACARBAZINE
     Indication: NEUROBLASTOMA
     Dosage: 200 MG/M^2/D (DAYS 1 TO 5) AT INTERVALS OF 3 WEEKS

REACTIONS (2)
  - Toxic encephalopathy [Recovered/Resolved]
  - Off label use [Unknown]
